FAERS Safety Report 9460367 (Version 4)
Quarter: 2016Q4

REPORT INFORMATION
  Report Type: Spontaneous
  Country: US (occurrence: US)
  Receive Date: 20130815
  Receipt Date: 20161025
  Transmission Date: 20170207
  Serious: Yes (Hospitalization, Other)
  Sender: FDA-Public Use
  Company Number: US-PFIZER INC-2013237189

PATIENT
  Age: 65 Year
  Sex: Male
  Weight: 88 kg

DRUGS (12)
  1. LOSARTAN. [Concomitant]
     Active Substance: LOSARTAN
     Dosage: UNK
  2. LISINOPRIL. [Concomitant]
     Active Substance: LISINOPRIL
     Indication: BLOOD PRESSURE ABNORMAL
  3. LIPITOR [Suspect]
     Active Substance: ATORVASTATIN CALCIUM
     Indication: BLOOD CHOLESTEROL
  4. PLAVIX [Suspect]
     Active Substance: CLOPIDOGREL BISULFATE
     Indication: CEREBROVASCULAR ACCIDENT
  5. LIPITOR [Suspect]
     Active Substance: ATORVASTATIN CALCIUM
     Indication: ARTERIOSCLEROSIS CORONARY ARTERY
     Dosage: 40 MG, 1X/DAY
     Route: 048
     Dates: start: 201105, end: 2012
  6. LIPITOR [Suspect]
     Active Substance: ATORVASTATIN CALCIUM
     Indication: CEREBROVASCULAR ACCIDENT
  7. CLOPIDOGREL SULFATE [Suspect]
     Active Substance: CLOPIDOGREL BISULFATE
     Indication: ANTICOAGULANT THERAPY
     Dosage: UNK
     Dates: start: 2012, end: 20160701
  8. PLAVIX [Suspect]
     Active Substance: CLOPIDOGREL BISULFATE
     Indication: ANTICOAGULANT THERAPY
     Dosage: 75 MG, 1X/DAY (ONCE DAILY)
     Dates: start: 201105, end: 2012
  9. ATORVASTATIN CALCIUM. [Suspect]
     Active Substance: ATORVASTATIN CALCIUM
     Dosage: UNK
     Dates: start: 2012, end: 20160701
  10. PLAVIX [Suspect]
     Active Substance: CLOPIDOGREL BISULFATE
     Indication: ARTERIOSCLEROSIS CORONARY ARTERY
  11. METOPROLOL. [Concomitant]
     Active Substance: METOPROLOL
     Indication: HYPERTENSION
     Dosage: 50 MG, DAILY
  12. LISINOPRIL. [Concomitant]
     Active Substance: LISINOPRIL
     Indication: HYPERTENSION
     Dosage: 40 MG, DAILY

REACTIONS (16)
  - Condition aggravated [Recovering/Resolving]
  - Rash macular [Recovering/Resolving]
  - Blister [Recovering/Resolving]
  - Coronary artery occlusion [Recovering/Resolving]
  - Drug ineffective for unapproved indication [Unknown]
  - Hernia [Unknown]
  - Joint injury [Unknown]
  - Eczema [Unknown]
  - Rash [Recovering/Resolving]
  - Pain in extremity [Unknown]
  - Pruritus [Unknown]
  - Swelling [Unknown]
  - Urticaria [Recovering/Resolving]
  - Nausea [Unknown]
  - Muscle tightness [Unknown]
  - Pain [Unknown]

NARRATIVE: CASE EVENT DATE: 2011
